FAERS Safety Report 14456849 (Version 1)
Quarter: 2018Q1

REPORT INFORMATION
  Report Type: Spontaneous
  Country: US (occurrence: US)
  Receive Date: 20180126
  Receipt Date: 20180126
  Transmission Date: 20180509
  Serious: Yes (Hospitalization)
  Sender: FDA-Public Use
  Company Number: None

PATIENT
  Age: 85 Year
  Sex: Female
  Weight: 88.5 kg

DRUGS (2)
  1. CISPLATIN. [Suspect]
     Active Substance: CISPLATIN
     Dates: end: 20180109
  2. GEMCITABINE HYDROCHLORIDE. [Suspect]
     Active Substance: GEMCITABINE HYDROCHLORIDE
     Dates: end: 20180109

REACTIONS (10)
  - Abdominal pain [None]
  - Diarrhoea [None]
  - Haemoglobin decreased [None]
  - Supraventricular extrasystoles [None]
  - Dermatitis [None]
  - Candida infection [None]
  - Hypokalaemia [None]
  - Superinfection [None]
  - Neutropenia [None]
  - Ischaemia [None]

NARRATIVE: CASE EVENT DATE: 20180114
